FAERS Safety Report 6154883-8 (Version None)
Quarter: 2009Q2

REPORT INFORMATION
  Report Type: 
  Country: None (occurrence: None)
  Receive Date: 20090414
  Receipt Date: 20090406
  Transmission Date: 20091009
  Serious: Yes (Other)
  Sender: FDA-Public Use
  Company Number: PHHY2009DE10851

PATIENT
  Sex: Female

DRUGS (5)
  1. RASILEZ [Suspect]
     Indication: HYPERTENSION
     Dosage: 150 MG, UNK
     Dates: start: 20090315, end: 20090317
  2. TORSEMIDE [Suspect]
     Indication: HYPERTENSION
     Dosage: 10 MG/D
  3. ATACAND [Suspect]
     Indication: HYPERTENSION
     Dosage: 16 MG/D
  4. AMLODIPINE [Suspect]
     Indication: HYPERTENSION
     Dosage: 5 MG/D
  5. BELOC ZOK [Suspect]
     Indication: HYPERTENSION
     Dosage: 95 MG/D

REACTIONS (5)
  - BLOOD PRESSURE INCREASED [None]
  - NIGHTMARE [None]
  - PALPITATIONS [None]
  - RENAL ARTERY STENOSIS [None]
  - SLEEP DISORDER [None]
